FAERS Safety Report 4723174-1 (Version None)
Quarter: 2005Q3

REPORT INFORMATION
  Report Type: 
  Country: None (occurrence: None)
  Receive Date: 20050719
  Receipt Date: 20040818
  Transmission Date: 20060218
  Serious: Yes (Other)
  Sender: FDA-Public Use
  Company Number: 2004229602US

PATIENT
  Age: 57 Year
  Sex: Female
  Weight: 61.2 kg

DRUGS (4)
  1. CELEBREX [Suspect]
     Indication: ARTHRALGIA
     Dosage: 200 MG, QD, ORAL
     Route: 048
     Dates: start: 20040801, end: 20040817
  2. DILTIAZEM [Concomitant]
  3. HYDROCHLOROTHIAZIDE [Concomitant]
  4. NEXIUM [Concomitant]

REACTIONS (2)
  - PAIN [None]
  - URTICARIA [None]
